FAERS Safety Report 18418799 (Version 1)
Quarter: 2020Q4

REPORT INFORMATION
  Report Type: Spontaneous
  Country: FR (occurrence: FR)
  Receive Date: 20201023
  Receipt Date: 20201023
  Transmission Date: 20210114
  Serious: Yes (Hospitalization)
  Sender: FDA-Public Use
  Company Number: FR-TEVA-2020-FR-1840348

PATIENT
  Age: 28 Year
  Sex: Female
  Weight: 107 kg

DRUGS (6)
  1. LEPTICUR 10 MG, COMPRIME [Suspect]
     Active Substance: TROPATEPINE HYDROCHLORIDE
     Indication: PRODUCT USED FOR UNKNOWN INDICATION
     Dosage: 10 MG
     Route: 048
     Dates: start: 20200526, end: 20200615
  2. FORLAX [Suspect]
     Active Substance: POLYETHYLENE GLYCOL 4000
     Indication: PRODUCT USED FOR UNKNOWN INDICATION
     Dosage: 2 SACHETS
     Route: 048
     Dates: start: 20200604, end: 20200615
  3. PRINCI B (CYANOCOBALAMIN\PYRIDOXINE HYDROCHLORIDE\THIAMINE) [Suspect]
     Active Substance: CYANOCOBALAMIN\PYRIDOXINE HYDROCHLORIDE\THIAMINE
     Indication: PRODUCT USED FOR UNKNOWN INDICATION
     Dosage: 2 CP
     Route: 048
     Dates: start: 20200526, end: 20200605
  4. QUETIAPINE. [Suspect]
     Active Substance: QUETIAPINE
     Indication: PSYCHIATRIC DECOMPENSATION
     Dosage: 600 MG
     Route: 048
     Dates: start: 20200527, end: 20200611
  5. LOXAPAC 50 MG, COMPRIME PELLICULE [Suspect]
     Active Substance: LOXAPINE SUCCINATE
     Indication: PSYCHOTIC DISORDER
     Dosage: 125 MG
     Route: 048
     Dates: start: 20200526, end: 20200611
  6. SERESTA 20 MG, COMPRIME [Suspect]
     Active Substance: OXAZEPAM
     Indication: PRODUCT USED FOR UNKNOWN INDICATION
     Dosage: 20 MG
     Route: 048
     Dates: start: 20200526, end: 20200608

REACTIONS (1)
  - Hepatocellular injury [Recovering/Resolving]

NARRATIVE: CASE EVENT DATE: 20200605
